FAERS Safety Report 24639970 (Version 1)
Quarter: 2024Q4

REPORT INFORMATION
  Report Type: Spontaneous
  Country: US (occurrence: US)
  Receive Date: 20241120
  Receipt Date: 20241120
  Transmission Date: 20250115
  Serious: Yes (Other)
  Sender: UCB
  Company Number: US-UCBSA-2024036686

PATIENT
  Sex: Female

DRUGS (1)
  1. CIMZIA [Suspect]
     Active Substance: CERTOLIZUMAB PEGOL
     Indication: Rheumatoid arthritis
     Dosage: 400 MILLIGRAM, EV 4 WEEKS
     Route: 058

REACTIONS (6)
  - Spinal operation [Unknown]
  - Fatigue [Recovered/Resolved]
  - Cough [Recovered/Resolved]
  - Intervertebral disc protrusion [Unknown]
  - Weight increased [Unknown]
  - Injury [Unknown]
